FAERS Safety Report 5804340-0 (Version None)
Quarter: 2008Q3

REPORT INFORMATION
  Report Type: 
  Country: None (occurrence: None)
  Receive Date: 20080709
  Receipt Date: 20080408
  Transmission Date: 20090109
  Serious: No
  Sender: FDA-Public Use
  Company Number: US-BAYER-200819482NA

PATIENT
  Age: 42 Year
  Sex: Female
  Weight: 62 kg

DRUGS (2)
  1. MIRENA [Suspect]
     Indication: CONTRACEPTION
     Route: 015
     Dates: start: 20080404, end: 20080407
  2. MULTI-VITAMINS [Concomitant]
     Route: 048

REACTIONS (6)
  - ABDOMINAL PAIN [None]
  - COMPLICATION OF DEVICE INSERTION [None]
  - HEADACHE [None]
  - MENORRHAGIA [None]
  - PAIN [None]
  - SENSATION OF PRESSURE [None]
